FAERS Safety Report 7718070-1 (Version None)
Quarter: 2011Q3

REPORT INFORMATION
  Report Type: 
  Country: None (occurrence: None)
  Receive Date: 20110830
  Receipt Date: 20110823
  Transmission Date: 20111222
  Serious: Yes (Hospitalization)
  Sender: FDA-Public Use
  Company Number: GB-JNJFOC-20110810535

PATIENT
  Age: 69 Year
  Sex: Female
  Weight: 74.4 kg

DRUGS (9)
  1. DILZEM [Concomitant]
     Dates: start: 20100527
  2. CYCLOSPORINE [Concomitant]
     Dates: start: 20100203, end: 20110221
  3. LANSOPRAZOLE [Concomitant]
     Dates: start: 20100527
  4. INFLIXIMAB, RECOMBINANT [Suspect]
     Indication: PSORIASIS
     Route: 042
     Dates: end: 20110707
  5. INFLIXIMAB, RECOMBINANT [Suspect]
     Route: 042
     Dates: start: 20100426
  6. CARDURA [Concomitant]
     Dates: start: 20100527
  7. COZAAR [Concomitant]
     Dates: start: 20100527
  8. ZOPICLONE [Concomitant]
     Dates: start: 20100527
  9. LANSOPRAZOLE [Concomitant]
     Dates: start: 20100527

REACTIONS (1)
  - GASTROINTESTINAL DISORDER [None]
